FAERS Safety Report 5044407-0 (Version None)
Quarter: 2006Q3

REPORT INFORMATION
  Report Type: 
  Country: None (occurrence: None)
  Receive Date: 20060706
  Receipt Date: 20060426
  Transmission Date: 20061208
  Serious: Yes (Hospitalization)
  Sender: FDA-Public Use
  Company Number: US-BRISTOL-MYERS SQUIBB COMPANY-13358148

PATIENT
  Age: 76 Year
  Sex: Female

DRUGS (7)
  1. CISPLATIN [Suspect]
     Route: 042
     Dates: start: 20050125
  2. TS-1 [Suspect]
     Route: 048
     Dates: start: 20050125, end: 20050211
  3. ZOFRAN [Concomitant]
     Indication: ANTIEMETIC SUPPORTIVE CARE
     Route: 048
     Dates: start: 20050125
  4. COLACE [Concomitant]
     Indication: DIARRHOEA
     Route: 048
     Dates: start: 20050118
  5. EMEND [Concomitant]
     Indication: ANTIEMETIC SUPPORTIVE CARE
     Route: 048
     Dates: start: 20050125, end: 20050127
  6. LASIX [Concomitant]
     Indication: DIURETIC THERAPY
     Route: 048
     Dates: start: 20050125
  7. FENTANYL TRANSDERMAL SYSTEM [Concomitant]
     Indication: PAIN
     Route: 062
     Dates: start: 20050125

REACTIONS (7)
  - BLOOD ALBUMIN DECREASED [None]
  - CONSTIPATION [None]
  - DEHYDRATION [None]
  - GENERALISED OEDEMA [None]
  - MALNUTRITION [None]
  - NAUSEA [None]
  - VOMITING [None]
